FAERS Safety Report 12935262 (Version 1)
Quarter: 2016Q4

REPORT INFORMATION
  Report Type: Spontaneous
  Country: US (occurrence: US)
  Receive Date: 20161114
  Receipt Date: 20161114
  Transmission Date: 20170207
  Serious: No
  Sender: FDA-Public Use
  Company Number: US-JAZZ-2016-US-018441

PATIENT
  Sex: Female

DRUGS (24)
  1. ALPHA LIPOIC ACID [Concomitant]
     Active Substance: .ALPHA.-LIPOIC ACID
  2. CIPRO [Concomitant]
     Active Substance: CIPROFLOXACIN HYDROCHLORIDE
  3. DECARA                             /00318501/ [Concomitant]
  4. PRED FORTE [Concomitant]
     Active Substance: PREDNISOLONE ACETATE
  5. TIMOLOL. [Concomitant]
     Active Substance: TIMOLOL
  6. COZAAR [Concomitant]
     Active Substance: LOSARTAN POTASSIUM
  7. TRIAMCINOLONE [Concomitant]
     Active Substance: TRIAMCINOLONE
  8. XYREM [Suspect]
     Active Substance: SODIUM OXYBATE
     Dosage: DOSE ADJUSTMENT
     Route: 048
     Dates: start: 201106, end: 201401
  9. GLIPIZIDE. [Concomitant]
     Active Substance: GLIPIZIDE
  10. ASPIRIN                            /00002701/ [Concomitant]
     Active Substance: ASPIRIN
  11. NAFTIN [Concomitant]
     Active Substance: NAFTIFINE HYDROCHLORIDE
  12. NIZORAL [Concomitant]
     Active Substance: KETOCONAZOLE
  13. VITAMIN D3 [Concomitant]
     Active Substance: CHOLECALCIFEROL
  14. PREMARIN [Concomitant]
     Active Substance: ESTROGENS, CONJUGATED
  15. VOLTAREN [Concomitant]
     Active Substance: DICLOFENAC SODIUM
  16. ALPRAZOLAM. [Concomitant]
     Active Substance: ALPRAZOLAM
  17. CELEBREX [Concomitant]
     Active Substance: CELECOXIB
  18. CHLORTHALIDONE. [Concomitant]
     Active Substance: CHLORTHALIDONE
  19. XANAX [Concomitant]
     Active Substance: ALPRAZOLAM
  20. XYREM [Suspect]
     Active Substance: SODIUM OXYBATE
     Dosage: 4 G, BID
     Route: 048
     Dates: start: 201401
  21. PATADAY [Concomitant]
     Active Substance: OLOPATADINE HYDROCHLORIDE
  22. ALPHAGAN P [Concomitant]
     Active Substance: BRIMONIDINE TARTRATE
  23. XYREM [Suspect]
     Active Substance: SODIUM OXYBATE
     Indication: NARCOLEPSY
     Dosage: 2.25 G, BID
     Route: 048
     Dates: start: 201101, end: 201106
  24. BEPREVE [Concomitant]
     Active Substance: BEPOTASTINE BESILATE

REACTIONS (1)
  - Pre-existing condition improved [Unknown]
